FAERS Safety Report 5274446-6 (Version None)
Quarter: 2007Q1

REPORT INFORMATION
  Report Type: 
  Country: None (occurrence: None)
  Receive Date: 20070323
  Receipt Date: 20070312
  Transmission Date: 20070707
  Serious: Yes (Other)
  Sender: FDA-Public Use
  Company Number: DE-PFIZER INC-2007019447

PATIENT
  Age: 87 Year
  Sex: Female

DRUGS (1)
  1. LYRICA [Suspect]
     Indication: PAIN
     Dosage: DAILY DOSE:25MG
     Route: 048

REACTIONS (5)
  - CONFUSIONAL STATE [None]
  - CYSTITIS [None]
  - GAIT DISTURBANCE [None]
  - MUSCLE TWITCHING [None]
  - PYREXIA [None]
